FAERS Safety Report 7299407-7 (Version None)
Quarter: 2011Q1

REPORT INFORMATION
  Report Type: 
  Country: None (occurrence: None)
  Receive Date: 20110217
  Receipt Date: 20110211
  Transmission Date: 20110831
  Serious: Yes (Hospitalization)
  Sender: FDA-Public Use
  Company Number: B0699796A

PATIENT
  Age: 38 Year
  Sex: Male

DRUGS (1)
  1. AVANDIA [Suspect]
     Dosage: 8MG PER DAY
     Route: 048
     Dates: start: 20050701, end: 20051101

REACTIONS (5)
  - CORONARY ARTERY DISEASE [None]
  - MYOCARDIAL ISCHAEMIA [None]
  - VENOUS THROMBOSIS [None]
  - ARRHYTHMIA [None]
  - MYOCARDIAL INFARCTION [None]
